FAERS Safety Report 6829550-5 (Version None)
Quarter: 2010Q3

REPORT INFORMATION
  Report Type: 
  Country: None (occurrence: None)
  Receive Date: 20100709
  Receipt Date: 20070327
  Transmission Date: 20110219
  Serious: No
  Sender: FDA-Public Use
  Company Number: US-PFIZER INC-2007005193

PATIENT
  Sex: Female

DRUGS (6)
  1. CHANTIX [Suspect]
     Indication: SMOKING CESSATION THERAPY
     Dates: start: 20070102
  2. ACEON [Concomitant]
     Indication: HYPERTENSION
  3. ACETYLSALICYLIC ACID [Concomitant]
  4. ESTRADIOL [Concomitant]
  5. MULTI-VITAMINS [Concomitant]
  6. LUNESTA [Concomitant]

REACTIONS (2)
  - DRUG ADMINISTRATION ERROR [None]
  - NAUSEA [None]
